FAERS Safety Report 12203731 (Version 1)
Quarter: 2016Q1

REPORT INFORMATION
  Report Type: Spontaneous
  Country: US (occurrence: None)
  Receive Date: 20160322
  Receipt Date: 20160322
  Transmission Date: 20160526
  Serious: Yes (Other)
  Sender: FDA-Public Use
  Company Number: None

PATIENT
  Age: 61 Year
  Sex: Male

DRUGS (2)
  1. OXYCODONE 5MG [Suspect]
     Active Substance: OXYCODONE
     Indication: PAIN
     Route: 048
  2. FENTANYL 12MCG [Suspect]
     Active Substance: FENTANYL
     Indication: PAIN
     Dosage: 123MCG PATCH

REACTIONS (5)
  - Depressed level of consciousness [None]
  - Pain [None]
  - Nausea [None]
  - Oxygen saturation decreased [None]
  - Decreased appetite [None]

NARRATIVE: CASE EVENT DATE: 20150817
